FAERS Safety Report 20706482 (Version 1)
Quarter: 2022Q2

REPORT INFORMATION
  Report Type: Spontaneous
  Country: CA (occurrence: None)
  Receive Date: 20220413
  Receipt Date: 20220413
  Transmission Date: 20220720
  Serious: Yes (Disabling)
  Sender: FDA-Public Use
  Company Number: None

PATIENT
  Age: 22 Year
  Sex: Female
  Weight: 56.25 kg

DRUGS (3)
  1. BETAMETHASONE [Suspect]
     Active Substance: BETAMETHASONE
     Indication: Eczema
     Dosage: FREQUENCY : TWICE A DAY;?
     Route: 061
  2. DESONIDE [Suspect]
     Active Substance: DESONIDE
  3. PREDNISONE [Suspect]
     Active Substance: PREDNISONE

REACTIONS (13)
  - Application site rash [None]
  - Application site pruritus [None]
  - Dry skin [None]
  - Rash [None]
  - Skin infection [None]
  - Insomnia [None]
  - Pyrexia [None]
  - Chills [None]
  - Neuralgia [None]
  - Temperature regulation disorder [None]
  - Paraesthesia [None]
  - Burning sensation [None]
  - Movement disorder [None]

NARRATIVE: CASE EVENT DATE: 20190101
